FAERS Safety Report 25524683 (Version 1)
Quarter: 2025Q3

REPORT INFORMATION
  Report Type: Spontaneous
  Country: US (occurrence: None)
  Receive Date: 20250704
  Receipt Date: 20250704
  Transmission Date: 20251021
  Serious: Yes (Hospitalization)
  Sender: FDA-CTU
  Company Number: None

PATIENT
  Age: 43 Year
  Sex: Male
  Weight: 241 kg

DRUGS (3)
  1. CISPLATIN [Suspect]
     Active Substance: CISPLATIN
     Dates: start: 20241227, end: 20250314
  2. Ifosfarnide [Concomitant]
  3. Paclitaxce Taxol [Concomitant]

REACTIONS (8)
  - Peripheral sensory neuropathy [None]
  - Joint effusion [None]
  - Joint effusion [None]
  - Deep vein thrombosis [None]
  - Atrial fibrillation [None]
  - Nausea [None]
  - Vomiting [None]
  - Postoperative ileus [None]

NARRATIVE: CASE EVENT DATE: 20250529
